FAERS Safety Report 5603213-6 (Version None)
Quarter: 2008Q1

REPORT INFORMATION
  Report Type: 
  Country: None (occurrence: None)
  Receive Date: 20080123
  Receipt Date: 20080110
  Transmission Date: 20080703
  Serious: Yes (Hospitalization)
  Sender: FDA-Public Use
  Company Number: 2008000879

PATIENT
  Age: 16 Year
  Sex: Male

DRUGS (3)
  1. ACTIFED [Suspect]
     Indication: INFLUENZA
     Dosage: ORAL
     Route: 048
     Dates: start: 20070129, end: 20070129
  2. AMOXICILLIN [Concomitant]
  3. CLAVULANIC ACID (CLAVULANIC ACID) [Concomitant]

REACTIONS (1)
  - DERMATOSIS [None]
